FAERS Safety Report 10366843 (Version 1)
Quarter: 2014Q3

REPORT INFORMATION
  Report Type: Spontaneous
  Country: BR (occurrence: BR)
  Receive Date: 20140807
  Receipt Date: 20140807
  Transmission Date: 20150326
  Serious: Yes (Other)
  Sender: FDA-Public Use
  Company Number: BR-ROCHE-1446014

PATIENT

DRUGS (1)
  1. LUCENTIS [Suspect]
     Active Substance: RANIBIZUMAB
     Indication: PRODUCT USED FOR UNKNOWN INDICATION
     Dosage: 4 AMPOULES
     Route: 050
     Dates: start: 20140728

REACTIONS (2)
  - Blindness [Unknown]
  - Pain [Unknown]

NARRATIVE: CASE EVENT DATE: 20140728
